FAERS Safety Report 8189232-7 (Version None)
Quarter: 2012Q1

REPORT INFORMATION
  Report Type: 
  Country: None (occurrence: None)
  Receive Date: 20120306
  Receipt Date: 20120306
  Transmission Date: 20120608
  Serious: Yes (Other)
  Sender: FDA-Public Use
  Company Number: None

PATIENT
  Sex: Female

DRUGS (2)
  1. FORTEO [Suspect]
     Indication: OSTEOPOROSIS
     Dosage: 20 MCG DAILY SUBQ
     Route: 058
     Dates: start: 20111101, end: 20120218
  2. ADDREA [Concomitant]

REACTIONS (5)
  - LOSS OF CONSCIOUSNESS [None]
  - CONVULSION [None]
  - MUSCULAR WEAKNESS [None]
  - UNEVALUABLE EVENT [None]
  - LOSS OF CONTROL OF LEGS [None]
